FAERS Safety Report 4906262-6 (Version None)
Quarter: 2006Q1

REPORT INFORMATION
  Report Type: 
  Country: None (occurrence: None)
  Receive Date: 20060207
  Receipt Date: 20060125
  Transmission Date: 20060701
  Serious: Yes (Congenital Anomaly, Other)
  Sender: FDA-Public Use
  Company Number: 2004047160

PATIENT
  Age: 1 Day
  Sex: Male
  Weight: 3.045 kg

DRUGS (7)
  1. FLUCONAZOLE [Suspect]
     Indication: ILL-DEFINED DISORDER
     Dosage: 400 MG
  2. SUSTIVA [Concomitant]
  3. NEVIRAPINE [Concomitant]
  4. METHADONE [Concomitant]
  5. DAPSONE [Concomitant]
  6. PENTAMIDINE [Concomitant]
  7. SEPTRA [Concomitant]

REACTIONS (12)
  - BONE DEVELOPMENT ABNORMAL [None]
  - CONDUCTIVE DEAFNESS [None]
  - CONGENITAL ANOMALY [None]
  - CONVULSION [None]
  - DRUG EXPOSURE DURING PREGNANCY [None]
  - DRUG WITHDRAWAL SYNDROME NEONATAL [None]
  - EYELID PTOSIS [None]
  - HYDRONEPHROSIS [None]
  - HYPERTELORISM OF ORBIT [None]
  - NEONATAL DISORDER [None]
  - SKULL MALFORMATION [None]
  - SYNOSTOSIS [None]
